FAERS Safety Report 6027151-2 (Version None)
Quarter: 2008Q4

REPORT INFORMATION
  Report Type: 
  Country: None (occurrence: None)
  Receive Date: 20081231
  Receipt Date: 20081231
  Transmission Date: 20090506
  Serious: No
  Sender: FDA-Public Use
  Company Number: None

PATIENT
  Age: 47 Year
  Sex: Male
  Weight: 80.7403 kg

DRUGS (2)
  1. LEVAQUIN [Suspect]
     Indication: PROSTATE INFECTION
     Dosage: 500MG  DAILY FOR 1 WEEK PO
     Route: 048
     Dates: start: 20080804, end: 20080809
  2. LEVAQUIN [Suspect]
     Indication: PROSTATE INFECTION
     Dosage: 375 MG DAILY FIR 2ND WEEK PO
     Route: 048
     Dates: start: 20080810, end: 20080817

REACTIONS (8)
  - ANXIETY [None]
  - ARTHRALGIA [None]
  - ARTHRITIS [None]
  - BACK PAIN [None]
  - MUSCULOSKELETAL PAIN [None]
  - MYALGIA [None]
  - NECK PAIN [None]
  - TENDONITIS [None]
